FAERS Safety Report 9768446 (Version 2)
Quarter: 2013Q4

REPORT INFORMATION
  Report Type: Spontaneous
  Country: US (occurrence: US)
  Receive Date: 20131217
  Receipt Date: 20131230
  Transmission Date: 20140711
  Serious: Yes (Hospitalization, Other)
  Sender: FDA-Public Use
  Company Number: US-GILEAD-2013-0089970

PATIENT
  Sex: Female

DRUGS (1)
  1. LETAIRIS [Suspect]
     Indication: PULMONARY ARTERIAL HYPERTENSION
     Dosage: 10 MG, QD
     Route: 065
     Dates: start: 20101227

REACTIONS (8)
  - Rectal ulcer haemorrhage [Unknown]
  - Transfusion [Unknown]
  - Hip arthroplasty [Unknown]
  - Loss of consciousness [Unknown]
  - Diverticulitis [Unknown]
  - Cardiac pacemaker insertion [Unknown]
  - Blood count abnormal [Unknown]
  - Polyp [Unknown]
